FAERS Safety Report 15365665 (Version 1)
Quarter: 2018Q3

REPORT INFORMATION
  Report Type: Spontaneous
  Country: US (occurrence: US)
  Receive Date: 20180831
  Receipt Date: 20180831
  Transmission Date: 20181010
  Serious: No
  Sender: FDA-Public Use
  Company Number: None

PATIENT
  Age: 59 Year
  Sex: Male
  Weight: 70.3 kg

DRUGS (3)
  1. NORCO/OPIOIDS [Concomitant]
  2. GEMCITABINE HYDROCHLORIDE. [Suspect]
     Active Substance: GEMCITABINE HYDROCHLORIDE
     Dates: end: 20161202
  3. CISPLATIN. [Suspect]
     Active Substance: CISPLATIN
     Indication: CONSTIPATION
     Dates: end: 20161202

REACTIONS (1)
  - Constipation [None]

NARRATIVE: CASE EVENT DATE: 20161213
